FAERS Safety Report 7680115-5 (Version None)
Quarter: 2011Q3

REPORT INFORMATION
  Report Type: 
  Country: None (occurrence: None)
  Receive Date: 20110812
  Receipt Date: 20110730
  Transmission Date: 20111222
  Serious: Yes (Other)
  Sender: FDA-Public Use
  Company Number: US-BAYER-2011-068052

PATIENT

DRUGS (1)
  1. ALEVE (CAPLET) [Suspect]

REACTIONS (1)
  - CHOKING [None]
